FAERS Safety Report 10559537 (Version 4)
Quarter: 2014Q4

REPORT INFORMATION
  Report Type: Report from Study
  Country: CA (occurrence: CA)
  Receive Date: 20141103
  Receipt Date: 20141231
  Transmission Date: 20150529
  Serious: Yes (Hospitalization)
  Sender: FDA-Public Use
  Company Number: PHHY2013CA109137

PATIENT
  Age: 76 Year
  Sex: Female

DRUGS (2)
  1. SANDOSTATIN LAR DEPOT [Suspect]
     Active Substance: OCTREOTIDE ACETATE
     Indication: NEUROENDOCRINE TUMOUR
     Dosage: 20 MG, QMO, EVERY 28 DAYS/4 WEEKS
     Route: 030
     Dates: start: 20120628
  2. SANDOSTATIN LAR DEPOT [Suspect]
     Active Substance: OCTREOTIDE ACETATE
     Dosage: 20 MG, QMO/EVERY 4 WEEKS
     Route: 030
     Dates: start: 20140514

REACTIONS (18)
  - Hyperphagia [Unknown]
  - Diarrhoea [Unknown]
  - Dizziness [Unknown]
  - Vomiting [Unknown]
  - Confusional state [Unknown]
  - Weight decreased [Unknown]
  - Wrong technique in drug usage process [Unknown]
  - Malaise [Unknown]
  - Blood glucose increased [Unknown]
  - Hypotension [Unknown]
  - Fatigue [Recovered/Resolved]
  - Fall [Unknown]
  - Blood pressure diastolic decreased [Unknown]
  - Mood altered [Unknown]
  - Asthenia [Unknown]
  - Blood pressure systolic increased [Unknown]
  - Arthralgia [Unknown]
  - Hip fracture [Unknown]

NARRATIVE: CASE EVENT DATE: 20140516
